FAERS Safety Report 13592231 (Version 4)
Quarter: 2017Q3

REPORT INFORMATION
  Report Type: Report from Study
  Country: None (occurrence: KR)
  Receive Date: 20170529
  Receipt Date: 20170708
  Transmission Date: 20171127
  Serious: Yes (Hospitalization, Other)
  Sender: FDA-Public Use
  Company Number: KR-ABBVIE-17K-090-1990647-00

PATIENT
  Age: 16 Year
  Sex: Male
  Weight: 65.7 kg

DRUGS (13)
  1. PETHIDINE [Concomitant]
     Active Substance: MEPERIDINE
     Indication: PROCEDURAL PAIN
     Route: 042
     Dates: start: 20161229, end: 20161229
  2. CEFAZOLIN [Concomitant]
     Active Substance: CEFAZOLIN
     Indication: VITELLO-INTESTINAL DUCT REMNANT
     Route: 042
     Dates: start: 20161229, end: 20170102
  3. EPHEDRINE. [Concomitant]
     Active Substance: EPHEDRINE
     Indication: VITELLO-INTESTINAL DUCT REMNANT
     Route: 042
     Dates: start: 20161226, end: 20161229
  4. METOCLOPRAMIDE. [Concomitant]
     Active Substance: METOCLOPRAMIDE
     Indication: VITELLO-INTESTINAL DUCT REMNANT
     Route: 042
     Dates: start: 20161230, end: 20161230
  5. PROFOL [Concomitant]
     Active Substance: PROPOFOL
     Indication: VITELLO-INTESTINAL DUCT REMNANT
     Route: 042
     Dates: start: 20161229, end: 20161229
  6. AZATHIOPRINE. [Concomitant]
     Active Substance: AZATHIOPRINE
     Indication: CROHN^S DISEASE
     Route: 048
     Dates: start: 20160907, end: 20170106
  7. MESALAZINE [Concomitant]
     Active Substance: MESALAMINE
     Indication: CROHN^S DISEASE
     Route: 048
     Dates: start: 20160907, end: 20161102
  8. FEROBA [Concomitant]
     Active Substance: FERROUS SULFATE\PROTEASE
     Indication: IRON DEFICIENCY ANAEMIA
     Route: 048
     Dates: start: 20160906, end: 20170306
  9. ADALIMUMAB [Suspect]
     Active Substance: ADALIMUMAB
     Indication: CROHN^S DISEASE
     Dosage: THREE TIMES
     Route: 058
     Dates: start: 20161125, end: 20161210
  10. ADALIMUMAB [Suspect]
     Active Substance: ADALIMUMAB
     Route: 058
     Dates: start: 20161224, end: 20170106
  11. ROCURONIUM [Concomitant]
     Active Substance: ROCURONIUM BROMIDE
     Indication: VITELLO-INTESTINAL DUCT REMNANT
     Route: 042
     Dates: start: 20161229, end: 20161229
  12. INFLUENZA VACCINE [Concomitant]
     Active Substance: INFLUENZA VIRUS VACCINE
     Indication: INFLUENZA IMMUNISATION
     Route: 030
     Dates: start: 20161224, end: 20161224
  13. ADALIMUMAB [Suspect]
     Active Substance: ADALIMUMAB
     Route: 058
     Dates: start: 20170203

REACTIONS (4)
  - Gastrooesophageal reflux disease [Unknown]
  - Ileal ulcer [Recovering/Resolving]
  - Haematochezia [Recovered/Resolved]
  - Ileus paralytic [Recovered/Resolved]

NARRATIVE: CASE EVENT DATE: 20161222
